FAERS Safety Report 18305754 (Version 2)
Quarter: 2022Q4

REPORT INFORMATION
  Report Type: Spontaneous
  Country: DE (occurrence: DE)
  Receive Date: 20200923
  Receipt Date: 20221026
  Transmission Date: 20230112
  Serious: Yes (Hospitalization)
  Sender: FDA-Public Use
  Company Number: DE-ANIPHARMA-2020-DE-000212

PATIENT
  Age: 83 Year
  Sex: Female

DRUGS (11)
  1. CANDESARTAN CILEXETIL AND HYDROCHLOROTHIAZIDE [Suspect]
     Active Substance: CANDESARTAN CILEXETIL\HYDROCHLOROTHIAZIDE
     Indication: Product used for unknown indication
     Dosage: 16/12.5 MILLIGRAM, EVERY DAY
     Route: 048
  2. FOSTER [Concomitant]
     Active Substance: BECLOMETHASONE\FORMOTEROL
     Dosage: 100/6 MICROGRAM, TWO TIMES A DAY
     Route: 055
  3. BIOTIN [Concomitant]
     Active Substance: BIOTIN
     Dosage: 5 MG QD
     Route: 048
  4. NEBIVOLOL [Concomitant]
     Active Substance: NEBIVOLOL
     Dosage: 5 MG QD
     Route: 048
  5. THIAMINE [Concomitant]
     Active Substance: THIAMINE
     Dosage: 100 MG QD
     Route: 048
  6. INSULIN LISPRO [Concomitant]
     Active Substance: INSULIN LISPRO
     Dosage: 1 IU UNK
     Route: 058
  7. ASPIRIN [Concomitant]
     Active Substance: ASPIRIN
     Dosage: 100 MG QD
     Route: 048
  8. LEVOTHYROXINE+POTASSIUM IODIDE [Concomitant]
     Dosage: 50/150 MICROGRAM, EVERY DAY
     Route: 048
  9. IODINE [Concomitant]
     Active Substance: IODINE
     Dosage: 200 UG QD
     Route: 048
  10. INSULIN DEGLUDEC [Concomitant]
     Active Substance: INSULIN DEGLUDEC
     Dosage: 30 IU QD
     Route: 058
  11. PANTOPRAZOLE SODIUM [Concomitant]
     Active Substance: PANTOPRAZOLE SODIUM
     Dosage: 40 MG QD
     Route: 048

REACTIONS (8)
  - Cough [Recovering/Resolving]
  - Dizziness [Recovering/Resolving]
  - Dyspnoea [Recovering/Resolving]
  - Nausea [Recovering/Resolving]
  - Thirst [Recovering/Resolving]
  - General physical health deterioration [Recovering/Resolving]
  - Dehydration [Recovering/Resolving]
  - Infection [Recovering/Resolving]
